FAERS Safety Report 23638799 (Version 1)
Quarter: 2024Q1

REPORT INFORMATION
  Report Type: Spontaneous
  Country: CA (occurrence: CA)
  Receive Date: 20240315
  Receipt Date: 20240315
  Transmission Date: 20240409
  Serious: Yes (Other)
  Sender: FDA-Public Use
  Company Number: CA-PFIZER INC-202400064599

PATIENT
  Age: 40 Year
  Sex: Female

DRUGS (16)
  1. TOFACITINIB CITRATE [Suspect]
     Active Substance: TOFACITINIB CITRATE
     Indication: Colitis ulcerative
     Dosage: 10 MG, 1X/DAY
     Route: 048
  2. INFLIXIMAB [Suspect]
     Active Substance: INFLIXIMAB
     Indication: Colitis ulcerative
     Route: 065
  3. METHYLPREDNISOLONE SODIUM SUCCINATE [Suspect]
     Active Substance: METHYLPREDNISOLONE SODIUM SUCCINATE
     Indication: Colitis ulcerative
     Route: 042
  4. BETAMETHASONE DIPROPIONATE [Suspect]
     Active Substance: BETAMETHASONE DIPROPIONATE
     Route: 065
  5. DESOXIMETASONE [Suspect]
     Active Substance: DESOXIMETASONE
     Route: 065
  6. ENTYVIO [Suspect]
     Active Substance: VEDOLIZUMAB
     Indication: Colitis ulcerative
     Dosage: 300 MG
     Route: 042
  7. HUMIRA [Suspect]
     Active Substance: ADALIMUMAB
     Indication: Colitis ulcerative
     Dosage: 80 MG, WEEKLY
     Route: 058
  8. MERCAPTOPURINE [Suspect]
     Active Substance: MERCAPTOPURINE
     Indication: Colitis ulcerative
     Route: 065
  9. MESALAMINE [Suspect]
     Active Substance: MESALAMINE
     Indication: Colitis ulcerative
     Route: 048
  10. MESALAMINE [Suspect]
     Active Substance: MESALAMINE
     Dosage: UNK
     Route: 054
  11. PREDNISOLONE [Suspect]
     Active Substance: PREDNISOLONE
     Indication: Colitis ulcerative
     Dosage: 10 MG, 1X/DAY
     Route: 048
  12. PREDNISOLONE [Suspect]
     Active Substance: PREDNISOLONE
     Dosage: 40 MG
     Route: 065
  13. USTEKINUMAB [Suspect]
     Active Substance: USTEKINUMAB
     Indication: Colitis ulcerative
     Route: 065
  14. EMTRICITABINE\TENOFOVIR [Concomitant]
     Active Substance: EMTRICITABINE\TENOFOVIR
     Indication: HIV infection
     Dosage: 200 MG, 1X/DAY
     Route: 065
  15. RALTEGRAVIR [Concomitant]
     Active Substance: RALTEGRAVIR
     Indication: HIV infection
     Dosage: 400 MG, 1X/DAY
     Route: 048
  16. TRUVADA [Concomitant]
     Active Substance: EMTRICITABINE\TENOFOVIR DISOPROXIL FUMARATE
     Indication: HIV infection
     Dosage: 10 MG, 1X/DAY
     Route: 048

REACTIONS (12)
  - Bacillus infection [Unknown]
  - Bacterial vulvovaginitis [Unknown]
  - Cataract [Unknown]
  - Cellulitis [Unknown]
  - Central obesity [Unknown]
  - Colitis ulcerative [Unknown]
  - Cushingoid [Unknown]
  - Drug ineffective [Unknown]
  - Escherichia infection [Unknown]
  - Furuncle [Unknown]
  - Weight increased [Unknown]
  - Therapy non-responder [Unknown]
